FAERS Safety Report 7524812-0 (Version None)
Quarter: 2011Q2

REPORT INFORMATION
  Report Type: 
  Country: None (occurrence: None)
  Receive Date: 20110606
  Receipt Date: 20110601
  Transmission Date: 20111010
  Serious: Yes (Other)
  Sender: FDA-Public Use
  Company Number: US-PFIZER INC-2011099264

PATIENT
  Sex: Female

DRUGS (9)
  1. AVALIDE [Concomitant]
     Indication: HYPERTENSION
     Dosage: 300/25 MG DAILY
     Route: 048
  2. PROCARDIA [Concomitant]
     Indication: HYPERTENSION
     Dosage: 60 MG, 1X/DAY
     Route: 048
  3. BYSTOLIC [Concomitant]
     Indication: HYPERTENSION
     Dosage: 5 MG, 1X/DAY
     Route: 048
  4. PREVACID [Concomitant]
     Indication: GASTROOESOPHAGEAL REFLUX DISEASE
     Dosage: 16 MG, 1X/DAY
     Route: 048
  5. XANAX XR [Concomitant]
     Indication: AGORAPHOBIA
     Dosage: 1.5 MG, 2X/DAY
     Route: 048
     Dates: start: 20050101
  6. XANAX XR [Concomitant]
     Indication: PANIC ATTACK
  7. EFFEXOR XR [Suspect]
     Indication: PANIC ATTACK
     Dosage: 37.5 MG, 1X/DAY
     Dates: start: 20050101
  8. EFFEXOR XR [Suspect]
     Indication: AGORAPHOBIA
     Dosage: 225 MG, 1X/DAY
     Route: 048
  9. SINGULAIR [Concomitant]
     Indication: ASTHMA
     Dosage: 10 MG, 1X/DAY
     Route: 048

REACTIONS (5)
  - KNEE ARTHROPLASTY [None]
  - INTERVERTEBRAL DISC PROTRUSION [None]
  - TINNITUS [None]
  - RHEUMATOID ARTHRITIS [None]
  - JUGULAR VEIN DISTENSION [None]
